FAERS Safety Report 17734027 (Version 1)
Quarter: 2020Q2

REPORT INFORMATION
  Report Type: Spontaneous
  Country: US (occurrence: US)
  Receive Date: 20200501
  Receipt Date: 20200501
  Transmission Date: 20200714
  Serious: Yes (Other)
  Sender: FDA-Public Use
  Company Number: None

PATIENT
  Age: 15 Year
  Sex: Female
  Weight: 74.25 kg

DRUGS (5)
  1. KETOROLAC 15MG/ML INJ [Concomitant]
     Dates: start: 20200428
  2. GAMUNEX-C [Suspect]
     Active Substance: HUMAN IMMUNOGLOBULIN G
     Route: 042
     Dates: start: 20200428, end: 20200428
  3. NACL 0.9% 500ML [Concomitant]
     Dates: start: 20200428
  4. DIPHENHYDRAMINE 25MG [Concomitant]
     Active Substance: DIPHENHYDRAMINE
     Dates: start: 20200428
  5. GAMUNEX-C [Suspect]
     Active Substance: HUMAN IMMUNOGLOBULIN G
     Indication: CHRONIC INFLAMMATORY DEMYELINATING POLYRADICULONEUROPATHY
     Route: 042
     Dates: start: 20200428, end: 20200428

REACTIONS (2)
  - Migraine [None]
  - Pyrexia [None]

NARRATIVE: CASE EVENT DATE: 20200428
